FAERS Safety Report 8522457-7 (Version None)
Quarter: 2012Q3

REPORT INFORMATION
  Report Type: 
  Country: None (occurrence: None)
  Receive Date: 20120709
  Receipt Date: 20120622
  Transmission Date: 20120928
  Serious: Yes (Hospitalization)
  Sender: FDA-Public Use
  Company Number: 2012-147

PATIENT
  Age: 44 Year
  Sex: Male

DRUGS (4)
  1. MIRTAZAPINE [Concomitant]
  2. ACETAMINOPHEN [Concomitant]
  3. PRIALT [Suspect]
     Indication: PAIN
     Dosage: 0.025 UG, ONCE/HOUR, INTRATHECAL
     Route: 037
     Dates: start: 20110511, end: 20110525
  4. MONOCRIXO (TRAMADOL HYDROCHLORIDE) [Concomitant]

REACTIONS (5)
  - VOMITING [None]
  - DRUG HYPERSENSITIVITY [None]
  - VERTIGO [None]
  - DRUG INTOLERANCE [None]
  - NAUSEA [None]
